FAERS Safety Report 13385930 (Version 1)
Quarter: 2017Q1

REPORT INFORMATION
  Report Type: Spontaneous
  Country: US (occurrence: US)
  Receive Date: 20170330
  Receipt Date: 20170330
  Transmission Date: 20170429
  Serious: No
  Sender: FDA-Public Use
  Company Number: US-009507513-1703USA006197

PATIENT
  Sex: Male

DRUGS (1)
  1. PROPECIA [Suspect]
     Active Substance: FINASTERIDE
     Dosage: UNK
     Route: 048

REACTIONS (5)
  - Libido increased [Not Recovered/Not Resolved]
  - Testicular pain [Not Recovered/Not Resolved]
  - Seborrhoea [Not Recovered/Not Resolved]
  - Pruritus [Not Recovered/Not Resolved]
  - Hair texture abnormal [Not Recovered/Not Resolved]
